FAERS Safety Report 19922771 (Version 1)
Quarter: 2021Q4

REPORT INFORMATION
  Report Type: Spontaneous
  Country: US (occurrence: US)
  Receive Date: 20211005
  Receipt Date: 20211005
  Transmission Date: 20220303
  Serious: Yes (Other)
  Sender: FDA-Public Use
  Company Number: None

PATIENT
  Age: 31 Year
  Sex: Male
  Weight: 99 kg

DRUGS (1)
  1. LOTRIMIN ANTIFUNGAL (MICONAZOLE NITRATE) [Suspect]
     Active Substance: MICONAZOLE NITRATE
     Indication: Scratch
     Dosage: APPLY
     Route: 061
     Dates: start: 20210701, end: 20210920

REACTIONS (2)
  - Localised infection [None]
  - Onychomadesis [None]

NARRATIVE: CASE EVENT DATE: 20210917
